FAERS Safety Report 7784875-4 (Version None)
Quarter: 2011Q3

REPORT INFORMATION
  Report Type: 
  Country: None (occurrence: None)
  Receive Date: 20110928
  Receipt Date: 20110919
  Transmission Date: 20111222
  Serious: Yes (Other)
  Sender: FDA-Public Use
  Company Number: DE-ASTRAZENECA-2011SE56727

PATIENT
  Age: 13446 Day
  Sex: Female
  Weight: 75 kg

DRUGS (1)
  1. BUPIVACAINE HCL [Suspect]
     Indication: SPINAL ANAESTHESIA
     Route: 037
     Dates: start: 20110728

REACTIONS (3)
  - NERVE BLOCK [None]
  - NEUROMUSCULAR BLOCKADE [None]
  - DRUG INEFFECTIVE [None]
